FAERS Safety Report 10756074 (Version 1)
Quarter: 2015Q1

REPORT INFORMATION
  Report Type: Spontaneous
  Country: US (occurrence: US)
  Receive Date: 20150202
  Receipt Date: 20150202
  Transmission Date: 20150721
  Serious: No
  Sender: FDA-Public Use
  Company Number: US-BAUSCH-BL-2014-003291

PATIENT
  Age: 38 Year
  Sex: Female
  Weight: 107.6 kg

DRUGS (3)
  1. NATURAL TEAR DROPS [Concomitant]
     Indication: PRODUCT USED FOR UNKNOWN INDICATION
  2. SYSTANE TEAR DROPS [Concomitant]
     Indication: PRODUCT USED FOR UNKNOWN INDICATION
  3. ZYLET [Suspect]
     Active Substance: LOTEPREDNOL ETABONATE\TOBRAMYCIN
     Indication: EYE INFECTION
     Dosage: TWO DROPS IN EACH EYE DAILY
     Route: 047
     Dates: start: 20140404, end: 20140405

REACTIONS (1)
  - Vision blurred [Not Recovered/Not Resolved]

NARRATIVE: CASE EVENT DATE: 20140404
